FAERS Safety Report 8845224 (Version 1)
Quarter: 2012Q4

REPORT INFORMATION
  Report Type: Spontaneous
  Country: US (occurrence: None)
  Receive Date: 20121011
  Receipt Date: 20121011
  Transmission Date: 20130627
  Serious: Yes (Other)
  Sender: FDA-Public Use
  Company Number: A12-131

PATIENT
  Age: 26 Year
  Sex: Male
  Weight: 72.58 kg

DRUGS (1)
  1. ALLERGENIC EXTRACT [Suspect]
     Dates: start: 20120827

REACTIONS (4)
  - Flushing [None]
  - Injection site reaction [None]
  - Ear congestion [None]
  - Urticaria [None]
